FAERS Safety Report 19251409 (Version 1)
Quarter: 2021Q2

REPORT INFORMATION
  Report Type: Spontaneous
  Country: US (occurrence: US)
  Receive Date: 20210513
  Receipt Date: 20210513
  Transmission Date: 20210717
  Serious: Yes (Other)
  Sender: FDA-Public Use
  Company Number: US-LUPIN PHARMACEUTICALS INC.-2021-06749

PATIENT
  Age: 20 Year
  Sex: Female

DRUGS (8)
  1. VITAMIN K [Suspect]
     Active Substance: PHYTONADIONE
     Indication: COAGULOPATHY
     Dosage: 5 MILLIGRAM, QD
     Route: 048
  2. BETAMETHASONE. [Suspect]
     Active Substance: BETAMETHASONE
     Indication: FOETAL GROWTH RESTRICTION
     Dosage: UNK
     Route: 065
  3. VITAMIN K [Suspect]
     Active Substance: PHYTONADIONE
     Dosage: INFUSION
     Route: 065
  4. VITAMIN K [Suspect]
     Active Substance: PHYTONADIONE
     Dosage: INTERMITTENT VITAMIN K INFUSIONUNK
     Route: 065
  5. URSODEOXYCHOLIC ACID [Suspect]
     Active Substance: URSODIOL
     Indication: PRURITUS
     Dosage: UNK
     Route: 065
  6. VITAMIN A [Suspect]
     Active Substance: VITAMIN A
     Indication: VITAMIN A DEFICIENCY
     Dosage: 100000 INTERNATIONAL UNIT
     Route: 030
  7. VITAMIN A [Suspect]
     Active Substance: VITAMIN A
     Dosage: 50000 INTERNATIONAL UNIT
     Route: 030
  8. VITAMIN E [Suspect]
     Active Substance: .ALPHA.-TOCOPHEROL
     Indication: VITAMIN E DEFICIENCY
     Dosage: UNK
     Route: 048

REACTIONS (2)
  - Premature delivery [Unknown]
  - Maternal exposure during pregnancy [Unknown]
